FAERS Safety Report 9166652 (Version 1)
Quarter: 2013Q1

REPORT INFORMATION
  Report Type: Report from Study
  Country: US (occurrence: US)
  Receive Date: 20130315
  Receipt Date: 20130315
  Transmission Date: 20140127
  Serious: Yes (Other)
  Sender: FDA-Public Use
  Company Number: US-US-EMD SERONO, INC.-7191483

PATIENT
  Sex: Female

DRUGS (5)
  1. REBIF [Suspect]
     Indication: MULTIPLE SCLEROSIS
     Route: 058
     Dates: start: 20090324, end: 201203
  2. REBIF [Suspect]
     Route: 058
     Dates: start: 20120324, end: 20120331
  3. REBIF [Suspect]
     Route: 058
  4. REBIF [Suspect]
     Route: 058
     Dates: start: 201206, end: 201301
  5. REBIF [Suspect]
     Route: 058
     Dates: start: 201301

REACTIONS (4)
  - Oophorectomy [Unknown]
  - Hepatic enzyme increased [Recovering/Resolving]
  - Hot flush [Not Recovered/Not Resolved]
  - Injection site erythema [Not Recovered/Not Resolved]
